FAERS Safety Report 4967922-4 (Version None)
Quarter: 2006Q2

REPORT INFORMATION
  Report Type: 
  Country: None (occurrence: None)
  Receive Date: 20060410
  Receipt Date: 20060329
  Transmission Date: 20061013
  Serious: Yes (Hospitalization)
  Sender: FDA-Public Use
  Company Number: US-MERCK-0604USA00118

PATIENT
  Age: 60 Year
  Sex: Male
  Weight: 90 kg

DRUGS (8)
  1. VIOXX [Suspect]
     Indication: BACK PAIN
     Route: 048
     Dates: start: 20020801, end: 20030915
  2. ASPIRIN [Concomitant]
     Indication: ANTICOAGULANT THERAPY
     Route: 065
     Dates: start: 19930101
  3. GLUCOPHAGE [Concomitant]
     Indication: DIABETES MELLITUS
     Route: 065
  4. PLAVIX [Concomitant]
     Route: 065
     Dates: start: 19930101, end: 20030101
  5. PRAVACHOL [Concomitant]
     Indication: BLOOD CHOLESTEROL INCREASED
     Route: 065
  6. NEURONTIN [Suspect]
     Route: 065
     Dates: start: 20030101
  7. NORVASC [Concomitant]
     Indication: BLOOD PRESSURE
     Route: 065
  8. CARDURA [Concomitant]
     Indication: BENIGN PROSTATIC HYPERPLASIA
     Route: 065

REACTIONS (2)
  - CEREBROVASCULAR ACCIDENT [None]
  - HERNIA [None]
